FAERS Safety Report 11941686 (Version 1)
Quarter: 2016Q1

REPORT INFORMATION
  Report Type: Spontaneous
  Country: US (occurrence: US)
  Receive Date: 20160123
  Receipt Date: 20160123
  Transmission Date: 20160526
  Serious: Yes (Death)
  Sender: FDA-Public Use
  Company Number: US-APOTEX-2016AP005662

PATIENT
  Age: 55 Year
  Sex: Female

DRUGS (3)
  1. ETHANOL [Suspect]
     Active Substance: ALCOHOL
     Route: 048
  2. TRAZODONE HYDROCHLORIDE. [Suspect]
     Active Substance: TRAZODONE HYDROCHLORIDE
     Route: 048
  3. CLONAZEPAM TABLETS USP [Suspect]
     Active Substance: CLONAZEPAM
     Route: 048

REACTIONS (2)
  - Cardio-respiratory arrest [Fatal]
  - Completed suicide [Fatal]
